FAERS Safety Report 22585890 (Version 1)
Quarter: 2023Q2

REPORT INFORMATION
  Report Type: Spontaneous
  Country: FR (occurrence: FR)
  Receive Date: 20230610
  Receipt Date: 20230610
  Transmission Date: 20230722
  Serious: Yes (Other)
  Sender: FDA-Public Use
  Company Number: None

PATIENT
  Age: 70 Year
  Sex: Female
  Weight: 92.1 kg

DRUGS (2)
  1. DOXYCYCLINE [Suspect]
     Active Substance: DOXYCYCLINE
     Indication: Post procedural infection
     Dosage: 100 MG, Q12H
     Route: 048
     Dates: start: 20221209, end: 20221227
  2. LINEZOLID [Suspect]
     Active Substance: LINEZOLID
     Indication: Post procedural infection
     Dosage: 600 MG, Q12H
     Route: 048
     Dates: start: 20221209, end: 20221227

REACTIONS (3)
  - Neuropathy peripheral [Recovering/Resolving]
  - Cholestasis [Recovered/Resolved]
  - Thrombocytopenia [Recovered/Resolved]

NARRATIVE: CASE EVENT DATE: 20221222
